FAERS Safety Report 7224557-0 (Version None)
Quarter: 2011Q1

REPORT INFORMATION
  Report Type: 
  Country: None (occurrence: None)
  Receive Date: 20110113
  Receipt Date: 20101116
  Transmission Date: 20110831
  Serious: No
  Sender: FDA-Public Use
  Company Number: US-BAYER-2010-005499

PATIENT
  Sex: Male

DRUGS (2)
  1. ALEVE (CAPLET) [Suspect]
     Indication: ARTHRITIS
     Dosage: UNK UNK, TID
     Route: 048
     Dates: start: 20101101, end: 20101112
  2. BENADRYL N [Concomitant]

REACTIONS (2)
  - SPEECH DISORDER [None]
  - DYSARTHRIA [None]
